FAERS Safety Report 15659381 (Version 1)
Quarter: 2018Q4

REPORT INFORMATION
  Report Type: Spontaneous
  Country: US (occurrence: US)
  Receive Date: 20181127
  Receipt Date: 20181127
  Transmission Date: 20190205
  Serious: No
  Sender: FDA-Public Use
  Company Number: US-TEVA-2018-US-973065

PATIENT
  Sex: Female

DRUGS (1)
  1. PREDNISONE. [Suspect]
     Active Substance: PREDNISONE
     Indication: MIGRAINE
     Route: 065
     Dates: start: 201807, end: 20181022

REACTIONS (5)
  - Urticaria [Unknown]
  - Asthenia [Unknown]
  - Hypersensitivity [Not Recovered/Not Resolved]
  - Pruritus [Unknown]
  - Erythema [Unknown]

NARRATIVE: CASE EVENT DATE: 201807
